FAERS Safety Report 25741911 (Version 1)
Quarter: 2025Q3

REPORT INFORMATION
  Report Type: Report from Study
  Country: TW (occurrence: TW)
  Receive Date: 20250829
  Receipt Date: 20250829
  Transmission Date: 20251021
  Serious: Yes (Other)
  Sender: SANOFI AVENTIS
  Company Number: TW-SA-2025SA256763

PATIENT
  Sex: Male

DRUGS (1)
  1. FITUSIRAN [Suspect]
     Active Substance: FITUSIRAN
     Indication: Haemophilia
     Dosage: 50 MG, QM
     Route: 058
     Dates: start: 202001, end: 202508

REACTIONS (3)
  - Arteriosclerosis coronary artery [Not Recovered/Not Resolved]
  - Chest pain [Not Recovered/Not Resolved]
  - Lipoprotein (a) increased [Not Recovered/Not Resolved]

NARRATIVE: CASE EVENT DATE: 20250701
